FAERS Safety Report 7554123-9 (Version None)
Quarter: 2011Q2

REPORT INFORMATION
  Report Type: 
  Country: None (occurrence: None)
  Receive Date: 20110610
  Receipt Date: 20110603
  Transmission Date: 20111010
  Serious: Yes (Hospitalization, Disabling, Other)
  Sender: FDA-Public Use
  Company Number: 2010SP042477

PATIENT
  Age: 31 Year
  Sex: Female
  Weight: 103.4201 kg

DRUGS (2)
  1. NUVARING [Suspect]
     Indication: MENSTRUAL CYCLE MANAGEMENT
     Dates: start: 20030101, end: 20080707
  2. HERBALIFE [Concomitant]

REACTIONS (12)
  - PULMONARY EMBOLISM [None]
  - PULMONARY FIBROSIS [None]
  - THERMAL BURN [None]
  - IMPAIRED WORK ABILITY [None]
  - OVARIAN CYST [None]
  - BODY TEMPERATURE INCREASED [None]
  - DEEP VEIN THROMBOSIS [None]
  - PULMONARY HYPERTENSION [None]
  - HEADACHE [None]
  - GENERAL PHYSICAL CONDITION ABNORMAL [None]
  - BODY TEMPERATURE DECREASED [None]
  - JAUNDICE [None]
